FAERS Safety Report 15995103 (Version 2)
Quarter: 2019Q1

REPORT INFORMATION
  Report Type: Spontaneous
  Country: IN (occurrence: IN)
  Receive Date: 20190222
  Receipt Date: 20190227
  Transmission Date: 20190418
  Serious: Yes (Other)
  Sender: FDA-Public Use
  Company Number: PHHY2019IN036756

PATIENT
  Age: 27 Year
  Sex: Female

DRUGS (5)
  1. METOPROLOL. [Suspect]
     Active Substance: METOPROLOL
     Indication: HEART RATE ABNORMAL
     Dosage: 12.5 MG, Q12H
     Route: 065
  2. OXYTOCIN. [Concomitant]
     Active Substance: OXYTOCIN
     Indication: TACHYCARDIA
  3. METOPROLOL. [Suspect]
     Active Substance: METOPROLOL
     Dosage: 12.5 MG, Q12H
     Route: 048
  4. FUROSEMIDE. [Suspect]
     Active Substance: FUROSEMIDE
     Indication: INCREASED VENTRICULAR PRELOAD
     Dosage: 40 MG, Q8H
     Route: 042
  5. OXYTOCIN. [Concomitant]
     Active Substance: OXYTOCIN
     Indication: FLUID OVERLOAD
     Dosage: 5 U, QH
     Route: 041

REACTIONS (6)
  - Cardiac failure [Unknown]
  - Blood pressure decreased [Unknown]
  - Normal newborn [Unknown]
  - Cyanosis [Unknown]
  - Dyspnoea [Unknown]
  - Maternal exposure during pregnancy [Unknown]
